FAERS Safety Report 10965010 (Version 1)
Quarter: 2015Q1

REPORT INFORMATION
  Report Type: Report from Study
  Country: CA (occurrence: None)
  Receive Date: 20150326
  Receipt Date: 20150326
  Transmission Date: 20150721
  Serious: Yes (Hospitalization)
  Sender: FDA-Public Use
  Company Number: 2015FE00909

PATIENT
  Age: 71 Year
  Sex: Male

DRUGS (1)
  1. DEGARELIX (DEGARELIX) POWDER AND SOLVENT FOR SOLUTION FOR INJECTION [Suspect]
     Active Substance: DEGARELIX
     Indication: PROSTATE CANCER
     Route: 058

REACTIONS (2)
  - Prostate cancer [None]
  - Dysuria [None]

NARRATIVE: CASE EVENT DATE: 20150308
